FAERS Safety Report 5928072-3 (Version None)
Quarter: 2008Q4

REPORT INFORMATION
  Report Type: 
  Country: None (occurrence: None)
  Receive Date: 20081023
  Receipt Date: 20081017
  Transmission Date: 20090506
  Serious: Yes (Other)
  Sender: FDA-Public Use
  Company Number: B0420785A

PATIENT
  Age: 58 Year
  Sex: Female

DRUGS (9)
  1. PAROXETINE HCL [Suspect]
     Route: 048
     Dates: start: 19980422, end: 20050401
  2. PAROXETINE HCL [Suspect]
     Route: 048
     Dates: end: 20050401
  3. TEMAZEPAM [Concomitant]
     Route: 065
  4. ETHANOL [Concomitant]
     Route: 065
  5. RISPERIDONE [Concomitant]
     Dosage: 2MG AT NIGHT
     Route: 065
     Dates: start: 20010118
  6. OLANZAPINE [Concomitant]
     Route: 065
     Dates: start: 20010209
  7. PROPRANOLOL [Concomitant]
     Route: 065
  8. MELLERIL [Concomitant]
     Dosage: 10MG TWICE PER DAY
     Route: 065
     Dates: start: 20001215
  9. THIORIDAZINE HYDROCHLORIDE [Concomitant]
     Route: 065

REACTIONS (8)
  - ADVERSE EVENT [None]
  - AGGRESSION [None]
  - ANXIETY [None]
  - FLIGHT OF IDEAS [None]
  - INSOMNIA [None]
  - RESTLESSNESS [None]
  - TINNITUS [None]
  - WITHDRAWAL SYNDROME [None]
